FAERS Safety Report 8327633-4 (Version None)
Quarter: 2012Q2

REPORT INFORMATION
  Report Type: 
  Country: None (occurrence: None)
  Receive Date: 20120502
  Receipt Date: 20120112
  Transmission Date: 20120825
  Serious: Yes (Other)
  Sender: FDA-Public Use
  Company Number: CA-BAYER-2011-086470

PATIENT
  Age: 41 Year
  Sex: Female

DRUGS (1)
  1. BETASERON [Suspect]
     Dosage: 250 ?G, QOD
     Route: 058

REACTIONS (3)
  - INJECTION SITE ATROPHY [None]
  - INJECTION SITE INFECTION [None]
  - LIPODYSTROPHY ACQUIRED [None]
